FAERS Safety Report 6316074-7 (Version None)
Quarter: 2009Q3

REPORT INFORMATION
  Report Type: 
  Country: None (occurrence: None)
  Receive Date: 20090820
  Receipt Date: 20090807
  Transmission Date: 20100115
  Serious: Yes (Other)
  Sender: FDA-Public Use
  Company Number: PHHY2009JP31785

PATIENT
  Age: 55 Year
  Sex: Female

DRUGS (3)
  1. TEGRETOL [Suspect]
     Indication: CONVULSION
     Dosage: 200 MG, / DAY
     Route: 048
  2. PHENOBARBITAL [Concomitant]
     Dosage: 100 MG, / DAY
  3. CLOBAZAM [Concomitant]
     Dosage: 10 MG, / DAY

REACTIONS (10)
  - APHASIA [None]
  - CONVULSION [None]
  - DIZZINESS [None]
  - FEELING ABNORMAL [None]
  - GAIT DISTURBANCE [None]
  - HEADACHE [None]
  - HEMIPARESIS [None]
  - NAUSEA [None]
  - PEPTIC ULCER [None]
  - WALKING AID USER [None]
